FAERS Safety Report 6659075-1 (Version None)
Quarter: 2010Q1

REPORT INFORMATION
  Report Type: 
  Country: None (occurrence: None)
  Receive Date: 20100324
  Receipt Date: 20100318
  Transmission Date: 20100710
  Serious: Yes (Other)
  Sender: FDA-Public Use
  Company Number: 2010SP016492

PATIENT
  Age: 20 Year
  Sex: Female
  Weight: 70 kg

DRUGS (2)
  1. IMPLANON [Suspect]
     Indication: CONTRACEPTION
     Dosage: SC
     Route: 058
     Dates: start: 20071208, end: 20080201
  2. LAMOTRIGINE [Suspect]
     Indication: EPILEPSY
     Dosage: 375 MG; QD; PO
     Route: 048
     Dates: start: 20030101

REACTIONS (1)
  - EPILEPSY [None]
